FAERS Safety Report 7312115-9 (Version None)
Quarter: 2011Q1

REPORT INFORMATION
  Report Type: 
  Country: None (occurrence: None)
  Receive Date: 20110224
  Receipt Date: 20110222
  Transmission Date: 20110831
  Serious: Yes (Disabling)
  Sender: FDA-Public Use
  Company Number: CHPA2011GB03087

PATIENT
  Age: 10 Year
  Sex: Female
  Weight: 32.4 kg

DRUGS (1)
  1. IBUPROFEN [Suspect]
     Dosage: UNK, UNK
     Route: 065
     Dates: start: 20110211

REACTIONS (4)
  - EYE SWELLING [None]
  - ACCIDENTAL OVERDOSE [None]
  - ACCIDENTAL DRUG INTAKE BY CHILD [None]
  - OCULAR HYPERAEMIA [None]
